FAERS Safety Report 16424653 (Version 1)
Quarter: 2019Q2

REPORT INFORMATION
  Report Type: Spontaneous
  Country: CN (occurrence: CN)
  Receive Date: 20190613
  Receipt Date: 20190613
  Transmission Date: 20190711
  Serious: Yes (Other)
  Sender: FDA-Public Use
  Company Number: CN-ASTRAZENECA-2019SE83389

PATIENT
  Sex: Female

DRUGS (3)
  1. TAGRISSO [Suspect]
     Active Substance: OSIMERTINIB
     Indication: SMALL CELL LUNG CANCER
     Route: 048
  2. GEFITINIB. [Suspect]
     Active Substance: GEFITINIB
     Indication: NON-SMALL CELL LUNG CANCER
     Route: 048
     Dates: start: 2012
  3. CRIZOTINIB [Concomitant]
     Active Substance: CRIZOTINIB
     Indication: SMALL CELL LUNG CANCER
     Route: 065

REACTIONS (6)
  - Malignant neoplasm progression [Unknown]
  - Product use in unapproved indication [Unknown]
  - Malignant transformation [Unknown]
  - Acquired gene mutation [Unknown]
  - Drug resistance [Unknown]
  - Off label use [Unknown]
